FAERS Safety Report 5052575-X (Version None)
Quarter: 2006Q3

REPORT INFORMATION
  Report Type: 
  Country: None (occurrence: None)
  Receive Date: 20060717
  Receipt Date: 20060712
  Transmission Date: 20061208
  Serious: Yes (Disabling, Other)
  Sender: FDA-Public Use
  Company Number: CA-GLAXOSMITHKLINE-A0612350A

PATIENT
  Age: 69 Year
  Sex: Female
  Weight: 66 kg

DRUGS (7)
  1. AVANDIA [Suspect]
     Indication: DIABETES MELLITUS
     Route: 065
     Dates: start: 20020101, end: 20060601
  2. METFORMIN [Concomitant]
     Dosage: 850MG THREE TIMES PER DAY
  3. INSULIN [Concomitant]
  4. MONOPRIL [Concomitant]
  5. LIPITOR [Concomitant]
  6. L-LYSINE [Concomitant]
  7. LOSEC [Concomitant]

REACTIONS (6)
  - FACE OEDEMA [None]
  - MACULAR OEDEMA [None]
  - OEDEMA PERIPHERAL [None]
  - RETINAL EXUDATES [None]
  - RETINAL HAEMORRHAGE [None]
  - VISUAL ACUITY REDUCED [None]
